FAERS Safety Report 13127701 (Version 2)
Quarter: 2017Q2

REPORT INFORMATION
  Report Type: Spontaneous
  Country: FR (occurrence: FR)
  Receive Date: 20170118
  Receipt Date: 20170613
  Transmission Date: 20170830
  Serious: Yes (Hospitalization)
  Sender: FDA-Public Use
  Company Number: FR-SA-2017SA007010

PATIENT
  Age: 65 Year
  Sex: Male

DRUGS (6)
  1. PLAVIX [Suspect]
     Active Substance: CLOPIDOGREL BISULFATE
     Route: 048
     Dates: start: 2016, end: 20161123
  2. BISOCE [Suspect]
     Active Substance: BISOPROLOL
     Dosage: BISOCE (BISOPROLOL FUMARATE) 5 MG, FILM COATED DIVISIBLE TABLET (1 DF, DAY(S))
     Route: 048
     Dates: start: 2016
  3. EUPANTOL [Suspect]
     Active Substance: PANTOPRAZOLE SODIUM
     Dosage: EUPANTOL (PANTOPRAZOLE) 40 MG, GASTRO-RESISTANT TABLET (1 DF,DAY(S))
     Route: 048
     Dates: start: 2016, end: 20170404
  4. FORADIL [Suspect]
     Active Substance: FORMOTEROL FUMARATE
     Indication: CHRONIC OBSTRUCTIVE PULMONARY DISEASE
     Dosage: FORADIL (FORMOTEROL FUMARATE) 12 MICROGRAMS, POWDER FOR INHALATION IN A CAPSULE (3 DF, DAY(S))
     Route: 055
     Dates: start: 2016, end: 20170410
  5. DUROGESIC [Suspect]
     Active Substance: FENTANYL
     Dosage: DUROGESIC (FENTANYL) 12 MICROGRAMS / HOUR, (2.1 MG / 5.25 CM 2 ), TRANSDERMAL PATCH 1 DF,3 DAY(S))
     Route: 062
     Dates: start: 2016
  6. COUMADINE [Suspect]
     Active Substance: WARFARIN SODIUM
     Indication: ATRIAL FIBRILLATION
     Dosage: COUMADINE (WARFARIN SODIUM) 2 MG, DIVISIBLE TABLET 3 DF, DAY ( S)
     Route: 048
     Dates: start: 2016, end: 20161123

REACTIONS (1)
  - Cholestasis [Recovering/Resolving]

NARRATIVE: CASE EVENT DATE: 20160524
